FAERS Safety Report 23266201 (Version 1)
Quarter: 2023Q4

REPORT INFORMATION
  Report Type: Spontaneous
  Country: GB (occurrence: GB)
  Receive Date: 20231206
  Receipt Date: 20231206
  Transmission Date: 20240110
  Serious: Yes (Hospitalization)
  Sender: FDA-Public Use
  Company Number: GB-MYLANLABS-2023M1128058

PATIENT
  Age: 31 Year
  Sex: Female

DRUGS (8)
  1. MYCOPHENOLATE MOFETIL [Suspect]
     Active Substance: MYCOPHENOLATE MOFETIL
     Indication: Still^s disease
     Dosage: 500 MILLIGRAM, BID
     Route: 065
  2. MYCOPHENOLATE MOFETIL [Suspect]
     Active Substance: MYCOPHENOLATE MOFETIL
     Indication: Haemophagocytic lymphohistiocytosis
  3. TACROLIMUS [Suspect]
     Active Substance: TACROLIMUS
     Indication: Still^s disease
     Dosage: UNK
     Route: 065
  4. TACROLIMUS [Suspect]
     Active Substance: TACROLIMUS
     Indication: Haemophagocytic lymphohistiocytosis
  5. PREDNISOLONE [Suspect]
     Active Substance: PREDNISOLONE
     Indication: Still^s disease
     Dosage: 20 MILLIGRAM
     Route: 065
  6. PREDNISOLONE [Suspect]
     Active Substance: PREDNISOLONE
     Indication: Haemophagocytic lymphohistiocytosis
  7. ANAKINRA [Concomitant]
     Active Substance: ANAKINRA
     Indication: Still^s disease
     Dosage: 200 MILLIGRAM
     Route: 065
  8. ANAKINRA [Concomitant]
     Active Substance: ANAKINRA
     Indication: Haemophagocytic lymphohistiocytosis

REACTIONS (2)
  - Cytomegalovirus viraemia [Unknown]
  - Off label use [Unknown]
